FAERS Safety Report 11184900 (Version 1)
Quarter: 2015Q2

REPORT INFORMATION
  Report Type: Spontaneous
  Country: US (occurrence: US)
  Receive Date: 20150612
  Receipt Date: 20150612
  Transmission Date: 20150821
  Serious: Yes (Life-Threatening, Hospitalization)
  Sender: FDA-Public Use
  Company Number: US-BAYER-2015-306750

PATIENT
  Age: 31 Year
  Sex: Female

DRUGS (2)
  1. DIPHENHYDRAMINE HYDROCHLORIDE. [Suspect]
     Active Substance: DIPHENHYDRAMINE HYDROCHLORIDE
     Dosage: 45 CAPLETS CONTAINING 200 MG OF IBUPROFEN AND 38 MG OF DIPHENHYDRAMINE
  2. IBUPROFEN. [Suspect]
     Active Substance: IBUPROFEN
     Dosage: 45 CAPLETS CONTAINING 200 MG OF IBUPROFEN AND 38 MG OF DIPHENHYDRAMINE

REACTIONS (5)
  - Hypotension [Recovered/Resolved]
  - Cardiac arrest [Recovered/Resolved]
  - Hypoxia [Recovered/Resolved]
  - Overdose [None]
  - Stress cardiomyopathy [Recovered/Resolved]
